FAERS Safety Report 11290291 (Version 2)
Quarter: 2016Q1

REPORT INFORMATION
  Report Type: Report from Study
  Country: BR (occurrence: BR)
  Receive Date: 20150722
  Receipt Date: 20160228
  Transmission Date: 20160525
  Serious: Yes (Hospitalization)
  Sender: FDA-Public Use
  Company Number: BR-ROCHE-1610035

PATIENT
  Age: 64 Year
  Sex: Female
  Weight: 80 kg

DRUGS (8)
  1. OMEPRAZOLE. [Concomitant]
     Active Substance: OMEPRAZOLE
     Indication: GASTRIC DISORDER
  2. PURAN [Concomitant]
     Active Substance: LEVOTHYROXINE SODIUM
     Indication: THYROID DISORDER
     Dosage: 1 TABLET IN THE MORNING
     Route: 065
  3. SIMVASTATIN. [Concomitant]
     Active Substance: SIMVASTATIN
  4. PRELONE [Concomitant]
     Active Substance: PREDNISOLONE
     Route: 065
  5. HYDROCHLOROTHIAZIDE. [Concomitant]
     Active Substance: HYDROCHLOROTHIAZIDE
     Route: 065
  6. ACTEMRA [Suspect]
     Active Substance: TOCILIZUMAB
     Indication: RHEUMATOID ARTHRITIS
     Dosage: MOSRT RECENT DOSE: ON 15/FEB/2016
     Route: 042
     Dates: start: 20140124
  7. ADDERA [Concomitant]
     Active Substance: CHOLECALCIFEROL
     Route: 065
  8. ARADOIS [Concomitant]
     Active Substance: LOSARTAN POTASSIUM
     Indication: BLOOD PRESSURE MEASUREMENT
     Dosage: 1 TABLET IN THE MORNING AND 1 TABLET AT NIGHT
     Route: 065

REACTIONS (5)
  - Musculoskeletal pain [Unknown]
  - Diabetes mellitus [Unknown]
  - Arthropathy [Unknown]
  - Hypersensitivity [Not Recovered/Not Resolved]
  - Somnolence [Unknown]

NARRATIVE: CASE EVENT DATE: 20150521
